FAERS Safety Report 11569483 (Version 1)
Quarter: 2015Q3

REPORT INFORMATION
  Report Type: Spontaneous
  Country: US (occurrence: US)
  Receive Date: 20150929
  Receipt Date: 20150929
  Transmission Date: 20151125
  Serious: No
  Sender: FDA-Public Use
  Company Number: US-SHIONOGI, INC-2014001129

PATIENT
  Age: 55 Year
  Sex: Female

DRUGS (2)
  1. DUAVEE [Interacting]
     Active Substance: BAZEDOXIFENE ACETATE\ESTROGENS, CONJUGATED
     Indication: HOT FLUSH
     Dosage: UNK
     Route: 065
     Dates: start: 20140825
  2. OSPHENA [Suspect]
     Active Substance: OSPEMIFENE
     Indication: DYSPAREUNIA
     Dosage: UNK
     Route: 065
     Dates: start: 20141006, end: 20141027

REACTIONS (5)
  - Vulvovaginal burning sensation [Recovering/Resolving]
  - Labelled drug-drug interaction medication error [Unknown]
  - Vaginal haemorrhage [Recovering/Resolving]
  - Vulvovaginal swelling [Recovering/Resolving]
  - Vulvovaginal erythema [Recovering/Resolving]

NARRATIVE: CASE EVENT DATE: 20141016
